FAERS Safety Report 7511385-1 (Version None)
Quarter: 2011Q2

REPORT INFORMATION
  Report Type: 
  Country: None (occurrence: None)
  Receive Date: 20110531
  Receipt Date: 20110124
  Transmission Date: 20111010
  Serious: Yes (Other)
  Sender: FDA-Public Use
  Company Number: US-BAYER-201021152NA

PATIENT
  Age: 29 Year
  Sex: Female
  Weight: 88.435 kg

DRUGS (9)
  1. YASMIN [Suspect]
  2. YAZ [Suspect]
     Indication: PREMENSTRUAL SYNDROME
     Dosage: UNK
     Dates: start: 20051001, end: 20080301
  3. YAZ [Suspect]
  4. YASMIN [Suspect]
     Indication: PREMENSTRUAL SYNDROME
     Dosage: UNK
     Route: 048
     Dates: start: 20051001, end: 20080301
  5. ORPHENADRINE CITRATE [Concomitant]
     Dosage: 100 MG, UNK
     Dates: start: 20060101
  6. CIPROFLOXACIN [Concomitant]
     Dosage: 250 MG, UNK
     Dates: start: 20070101
  7. NSAID'S [Concomitant]
     Dosage: UNK
     Dates: start: 19940101
  8. HYDROCODONE BITARTRATE AND ACETAMINOPHEN [Concomitant]
     Dosage: 10/500 MG UNK
     Dates: start: 20080101
  9. VITAMIN C CITRUS [Concomitant]
     Dosage: UNK
     Dates: start: 20050101

REACTIONS (3)
  - DEEP VEIN THROMBOSIS [None]
  - THROMBOSIS [None]
  - MENTAL DISORDER [None]
